FAERS Safety Report 21346339 (Version 2)
Quarter: 2022Q3

REPORT INFORMATION
  Report Type: Report from Study
  Country: MA (occurrence: MA)
  Receive Date: 20220917
  Receipt Date: 20220923
  Transmission Date: 20221027
  Serious: Yes (Other)
  Sender: FDA-Public Use
  Company Number: MA-NOVARTISPH-NVSC2022MA208142

PATIENT
  Sex: Female

DRUGS (2)
  1. COSENTYX [Suspect]
     Active Substance: SECUKINUMAB
     Indication: Ankylosing spondylitis
     Dosage: 150 MG, QMO
     Route: 058
     Dates: start: 20190709
  2. COSENTYX [Suspect]
     Active Substance: SECUKINUMAB
     Dosage: UNK (BEGINNING OF THE MONTH)
     Route: 065

REACTIONS (12)
  - Paralysis [Unknown]
  - Hypoaesthesia [Unknown]
  - Dysphonia [Unknown]
  - Fatigue [Unknown]
  - Cough [Unknown]
  - Anosmia [Unknown]
  - Oropharyngeal pain [Unknown]
  - Decreased immune responsiveness [Unknown]
  - Pain [Not Recovered/Not Resolved]
  - Movement disorder [Unknown]
  - Limb discomfort [Unknown]
  - Nasopharyngitis [Unknown]
